FAERS Safety Report 4332847-4 (Version None)
Quarter: 2004Q1

REPORT INFORMATION
  Report Type: 
  Country: None (occurrence: None)
  Receive Date: 20040330
  Receipt Date: 20040312
  Transmission Date: 20041129
  Serious: Yes (Death)
  Sender: FDA-Public Use
  Company Number: A01200401231

PATIENT
  Age: 77 Year
  Sex: Male

DRUGS (5)
  1. ARIXTRA [Suspect]
     Indication: KNEE ARTHROPLASTY
     Dosage: 2.5 MG OD
     Route: 058
     Dates: start: 20040225, end: 20040302
  2. ARIXTRA [Suspect]
     Indication: THROMBOSIS PROPHYLAXIS
     Dosage: 2.5 MG OD
     Route: 058
     Dates: start: 20040225, end: 20040302
  3. KETOPROFEN [Concomitant]
  4. TRAMADOL HCL [Concomitant]
  5. ACETAMINOPHEN [Concomitant]

REACTIONS (12)
  - ADRENAL HAEMORRHAGE [None]
  - CEREBRAL HAEMORRHAGE [None]
  - CONFUSIONAL STATE [None]
  - HAEMORRHAGE [None]
  - HEMIPLEGIA [None]
  - HEPATIC HAEMORRHAGE [None]
  - INTRA-ABDOMINAL HAEMORRHAGE [None]
  - OCULAR ICTERUS [None]
  - RENAL HAEMORRHAGE [None]
  - RESPIRATORY TRACT HAEMORRHAGE [None]
  - SPLEEN DISORDER [None]
  - SPLENIC HAEMORRHAGE [None]
